FAERS Safety Report 4993508-1 (Version None)
Quarter: 2006Q2

REPORT INFORMATION
  Report Type: 
  Country: None (occurrence: None)
  Receive Date: 20060505
  Receipt Date: 20060502
  Transmission Date: 20061013
  Serious: No
  Sender: FDA-Public Use
  Company Number: 2006PK00913

PATIENT
  Age: 9852 Day
  Sex: Female

DRUGS (2)
  1. SEROQUEL [Suspect]
     Indication: DEPRESSION
     Dosage: 800 MG TO 1200 MG DAILY
     Dates: start: 20051101, end: 20060401
  2. TREVILOR [Concomitant]
     Indication: INTENTIONAL SELF-INJURY
     Dosage: 150 MG UP TO 225 MG

REACTIONS (1)
  - LEUKOPENIA [None]
